FAERS Safety Report 8003498-5 (Version None)
Quarter: 2011Q4

REPORT INFORMATION
  Report Type: 
  Country: None (occurrence: None)
  Receive Date: 20111222
  Receipt Date: 20111220
  Transmission Date: 20120403
  Serious: No
  Sender: FDA-Public Use
  Company Number: US-PFIZER INC-2011309644

PATIENT
  Sex: Female
  Weight: 249 kg

DRUGS (2)
  1. IBUPROFEN (ADVIL) [Suspect]
     Indication: ARTHRITIS
  2. IBUPROFEN (ADVIL) [Suspect]
     Indication: KNEE ARTHROPLASTY
     Dosage: TWO TABLETS, DAILY
     Route: 048

REACTIONS (1)
  - JOINT STIFFNESS [None]
